FAERS Safety Report 14495532 (Version 1)
Quarter: 2018Q1

REPORT INFORMATION
  Report Type: Report from Study
  Country: US (occurrence: US)
  Receive Date: 20180206
  Receipt Date: 20180206
  Transmission Date: 20180509
  Serious: Yes (Death)
  Sender: FDA-Public Use
  Company Number: US-VIFOR (INTERNATIONAL) INC.-VIT-2018-01370

PATIENT
  Sex: Male

DRUGS (11)
  1. VELTASSA [Suspect]
     Active Substance: PATIROMER
     Indication: HYPERKALAEMIA
     Route: 048
     Dates: start: 20171020
  2. DIGOXIN. [Concomitant]
     Active Substance: DIGOXIN
  3. BISOPROLOL FUMARATE. [Concomitant]
     Active Substance: BISOPROLOL FUMARATE
  4. TORASEMIDE [Concomitant]
     Active Substance: TORSEMIDE
  5. VELTASSA [Suspect]
     Active Substance: PATIROMER
     Dates: start: 20170926
  6. METOPROLOL. [Concomitant]
     Active Substance: METOPROLOL
  7. ELIQUIS [Concomitant]
     Active Substance: APIXABAN
  8. HYDROXYUREA. [Concomitant]
     Active Substance: HYDROXYUREA
  9. AMIODARONE [Concomitant]
     Active Substance: AMIODARONE
  10. SANDOSTATIN [Concomitant]
     Active Substance: OCTREOTIDE ACETATE
  11. ACETYLSALICYLIC ACID [Concomitant]
     Active Substance: ASPIRIN

REACTIONS (1)
  - Death [Fatal]
